FAERS Safety Report 26009015 (Version 2)
Quarter: 2025Q4

REPORT INFORMATION
  Report Type: Report from Study
  Country: EU (occurrence: EU)
  Receive Date: 20251107
  Receipt Date: 20251109
  Transmission Date: 20260117
  Serious: Yes (Death)
  Sender: ABBVIE
  Company Number: EU-ABBVIE-6473929

PATIENT
  Age: 66 Year
  Sex: Female

DRUGS (1)
  1. FOSCARBIDOPA\FOSLEVODOPA [Suspect]
     Active Substance: FOSCARBIDOPA\FOSLEVODOPA
     Indication: Parkinson^s disease
     Dosage: CRN: 0.32 ML/H, CR: 0.44 ML/H, CRH: 0.48 ML/H, ED: 0.15 ML
     Route: 058
     Dates: start: 20250218

REACTIONS (4)
  - Death [Fatal]
  - On and off phenomenon [Unknown]
  - Syncope [Not Recovered/Not Resolved]
  - Infusion site induration [Not Recovered/Not Resolved]

NARRATIVE: CASE EVENT DATE: 20250101
